FAERS Safety Report 12139955 (Version 1)
Quarter: 2016Q1

REPORT INFORMATION
  Report Type: Report from Study
  Country: US (occurrence: US)
  Receive Date: 20160303
  Receipt Date: 20160303
  Transmission Date: 20160526
  Serious: Yes (Other)
  Sender: FDA-Public Use
  Company Number: US-BEH-2016059553

PATIENT

DRUGS (1)
  1. ZEMAIRA [Suspect]
     Active Substance: .ALPHA.1-PROTEINASE INHIBITOR HUMAN
     Indication: ACUTE GRAFT VERSUS HOST DISEASE

REACTIONS (6)
  - Gastrointestinal disorder [Unknown]
  - Intracranial hypotension [Unknown]
  - Pupils unequal [Unknown]
  - Supraventricular tachycardia [Unknown]
  - Headache [Unknown]
  - Somnolence [Unknown]

NARRATIVE: CASE EVENT DATE: 20141204
